FAERS Safety Report 12861079 (Version 1)
Quarter: 2016Q4

REPORT INFORMATION
  Report Type: Spontaneous
  Country: US (occurrence: US)
  Receive Date: 20161019
  Receipt Date: 20161019
  Transmission Date: 20170207
  Serious: Yes (Hospitalization)
  Sender: FDA-Public Use
  Company Number: US-BEH-2015055844

PATIENT
  Sex: Female
  Weight: 74.84 kg

DRUGS (13)
  1. SODIUM CHLORIDE. [Concomitant]
     Active Substance: SODIUM CHLORIDE
  2. DEPO-PROVERA [Concomitant]
     Active Substance: MEDROXYPROGESTERONE ACETATE
  3. EPIPEN [Concomitant]
     Active Substance: EPINEPHRINE
  4. TRAMADOL. [Concomitant]
     Active Substance: TRAMADOL
  5. NORMAL SALINE [Concomitant]
     Active Substance: SODIUM CHLORIDE
  6. PERCOCET [Concomitant]
     Active Substance: ACETAMINOPHEN\OXYCODONE HYDROCHLORIDE
  7. NEURONTIN [Concomitant]
     Active Substance: GABAPENTIN
  8. ZOFRAN [Concomitant]
     Active Substance: ONDANSETRON HYDROCHLORIDE
  9. LYSTEDA [Concomitant]
     Active Substance: TRANEXAMIC ACID
  10. BERINERT [Suspect]
     Active Substance: HUMAN C1-ESTERASE INHIBITOR
     Indication: HEREDITARY ANGIOEDEMA
     Dosage: 500 UNIT VIAL
     Route: 042
  11. HEPARIN [Concomitant]
     Active Substance: HEPARIN SODIUM
  12. CARDIZEM [Concomitant]
     Active Substance: DILTIAZEM HYDROCHLORIDE
  13. NEXIUM [Concomitant]
     Active Substance: ESOMEPRAZOLE MAGNESIUM

REACTIONS (1)
  - Hereditary angioedema [Recovered/Resolved]
